FAERS Safety Report 4373222-6 (Version None)
Quarter: 2004Q2

REPORT INFORMATION
  Report Type: 
  Country: None (occurrence: None)
  Receive Date: 20040608
  Receipt Date: 20040430
  Transmission Date: 20050107
  Serious: Yes (Life-Threatening, Hospitalization, Disabling, Other)
  Sender: FDA-Public Use
  Company Number: US-GLAXOSMITHKLINE-A0509134A

PATIENT
  Age: 72 Year
  Sex: Male
  Weight: 50 kg

DRUGS (4)
  1. ZOVIRAX [Suspect]
     Indication: HERPES ZOSTER
     Dosage: 1300MG TWICE PER DAY
     Route: 042
     Dates: start: 20040427, end: 20040429
  2. ZOVIRAX [Suspect]
     Dosage: 800MG FIVE TIMES PER DAY
     Route: 048
     Dates: start: 20040426, end: 20040427
  3. LISINOPRIL [Concomitant]
     Indication: HYPERTENSION
     Dosage: 10MG PER DAY
     Route: 048
     Dates: start: 20040426, end: 20040429
  4. ASPIRIN [Concomitant]
     Dosage: 81MG PER DAY
     Route: 048
     Dates: start: 20040426

REACTIONS (1)
  - BLOOD CREATININE INCREASED [None]
